FAERS Safety Report 7318984-0 (Version None)
Quarter: 2011Q1

REPORT INFORMATION
  Report Type: 
  Country: None (occurrence: None)
  Receive Date: 20110228
  Receipt Date: 20110214
  Transmission Date: 20110831
  Serious: Yes (Life-Threatening, Hospitalization)
  Sender: FDA-Public Use
  Company Number: KR-MYLANLABS-2011S1003179

PATIENT
  Age: 67 Year
  Sex: Male

DRUGS (1)
  1. FENTANYL [Suspect]
     Indication: NECK PAIN
     Dosage: THE DRUG RESERVOIR OF EACH PATCH CONTAINED 2.5MG OF FENTANYL PER 10CM2 OF PATCH SIZE
     Route: 062

REACTIONS (3)
  - DRUG ABUSE [None]
  - COMA [None]
  - ATRIAL FIBRILLATION [None]
